FAERS Safety Report 15720852 (Version 1)
Quarter: 2018Q4

REPORT INFORMATION
  Report Type: Spontaneous
  Country: GT (occurrence: GT)
  Receive Date: 20181214
  Receipt Date: 20181214
  Transmission Date: 20190205
  Serious: Yes (Life-Threatening)
  Sender: FDA-Public Use
  Company Number: GT-PFIZER INC-2018516077

PATIENT
  Age: 67 Year
  Sex: Male

DRUGS (1)
  1. TRITACE [Suspect]
     Active Substance: RAMIPRIL
     Dosage: UNK
     Route: 048

REACTIONS (3)
  - Cerebral infarction [Unknown]
  - Drug ineffective [Unknown]
  - Blood pressure increased [Unknown]
